FAERS Safety Report 10005826 (Version 2)
Quarter: 2014Q1

REPORT INFORMATION
  Report Type: Spontaneous
  Country: DE (occurrence: DE)
  Receive Date: 20140313
  Receipt Date: 20140313
  Transmission Date: 20141002
  Serious: Yes (Life-Threatening, Hospitalization, Other)
  Sender: FDA-Public Use
  Company Number: DE-009507513-1402DEU008927

PATIENT
  Age: 75 Year
  Sex: Female
  Weight: 43 kg

DRUGS (6)
  1. NACOM 100 MG/25 MG TABLETTEN [Suspect]
     Indication: PARKINSON^S DISEASE
     Dosage: UNK
     Route: 048
  2. PANTOPRAZOLE [Concomitant]
     Dosage: UNK
  3. ASPIRIN [Concomitant]
     Dosage: UNK
  4. VIGANTOLETTEN [Concomitant]
     Dosage: UNK
  5. L-THYROXIN [Concomitant]
     Dosage: UNK
  6. COMTESS [Concomitant]
     Dosage: UNK

REACTIONS (3)
  - Loss of consciousness [Recovered/Resolved]
  - Iron deficiency anaemia [Recovered/Resolved]
  - Syncope [Recovered/Resolved]
